FAERS Safety Report 9744659 (Version 1)
Quarter: 2013Q4

REPORT INFORMATION
  Report Type: Spontaneous
  Country: RO (occurrence: RO)
  Receive Date: 20131210
  Receipt Date: 20131210
  Transmission Date: 20140711
  Serious: Yes (Hospitalization)
  Sender: FDA-Public Use
  Company Number: RO-MERCK-1312ROM003454

PATIENT
  Age: 67 Year
  Sex: Female

DRUGS (4)
  1. PEGINTRON [Suspect]
     Indication: CHRONIC HEPATITIS C
     Dosage: 100 MICROGRAMS ONCE A WEEK
     Route: 058
     Dates: start: 20130619
  2. REBETOL [Concomitant]
     Indication: CHRONIC HEPATITIS C
     Dosage: 400 MG/DAY
     Route: 048
     Dates: start: 20130619
  3. ANXIAR [Concomitant]
     Indication: DEPRESSION
     Dosage: UNK
  4. CIPRALEX [Concomitant]
     Indication: DEPRESSION
     Dosage: UNK

REACTIONS (2)
  - Paraparesis [Recovered/Resolved]
  - Pain in extremity [Recovered/Resolved]
